FAERS Safety Report 8489451-6 (Version None)
Quarter: 2012Q2

REPORT INFORMATION
  Report Type: 
  Country: None (occurrence: None)
  Receive Date: 20120628
  Receipt Date: 20120628
  Transmission Date: 20120825
  Serious: Yes (Disabling)
  Sender: FDA-Public Use
  Company Number: None

PATIENT
  Age: 54 Year
  Sex: Female
  Weight: 61.2356 kg

DRUGS (1)
  1. METHYLPREDNISOLONE [Suspect]
     Indication: ALLERGY TO ANIMAL
     Dosage: 4 MG 3-4 TIMES DAILY PO; POSSIBLE HIGHER DOSAGE AT TIME DECREASING DAILY PO
     Route: 048
     Dates: start: 20091201, end: 20120619

REACTIONS (1)
  - KERATOCONUS [None]
